FAERS Safety Report 7779903-6 (Version None)
Quarter: 2011Q3

REPORT INFORMATION
  Report Type: 
  Country: None (occurrence: None)
  Receive Date: 20110927
  Receipt Date: 20110303
  Transmission Date: 20111222
  Serious: No
  Sender: FDA-Public Use
  Company Number: US-ASTRAZENECA-2011SE12438

PATIENT
  Age: 39 Year
  Sex: Female
  Weight: 61.7 kg

DRUGS (12)
  1. REGLAN [Concomitant]
     Indication: VOMITING
  2. SEROQUEL XR [Suspect]
     Indication: BIPOLAR DISORDER
     Route: 048
     Dates: start: 20020101
  3. MEDROXY [Concomitant]
     Indication: HORMONE REPLACEMENT THERAPY
  4. XANXEX [Concomitant]
     Indication: ANXIETY
  5. TEGRETOL [Concomitant]
  6. BROVANA [Concomitant]
     Indication: ASTHMA
  7. BUDESONIDE [Concomitant]
     Indication: ASTHMA
  8. ALBUTEROL [Concomitant]
     Indication: ASTHMA
  9. ESTRODIAL [Concomitant]
     Indication: HORMONE REPLACEMENT THERAPY
  10. PRILOSEC [Concomitant]
     Indication: GASTRIC DISORDER
  11. IPAROPIUM BROMIDE [Concomitant]
     Indication: ASTHMA
  12. CLONIDINE [Concomitant]
     Indication: BLOOD PRESSURE

REACTIONS (7)
  - ABDOMINAL DISCOMFORT [None]
  - DIARRHOEA [None]
  - RHINORRHOEA [None]
  - INSOMNIA [None]
  - HYPERHIDROSIS [None]
  - EMOTIONAL DISORDER [None]
  - DRUG DOSE OMISSION [None]
